FAERS Safety Report 5358447-5 (Version None)
Quarter: 2007Q2

REPORT INFORMATION
  Report Type: 
  Country: None (occurrence: None)
  Receive Date: 20070601
  Receipt Date: 20070423
  Transmission Date: 20071010
  Serious: Yes (Other)
  Sender: FDA-Public Use
  Company Number: PHEH2007US01610

PATIENT
  Age: 62 Year
  Sex: Male

DRUGS (6)
  1. ENABLEX [Suspect]
     Indication: HYPERTONIC BLADDER
     Dosage: 7.5 MG, QD
     Dates: start: 20070126, end: 20070202
  2. PROCARDIA [Concomitant]
  3. ATENOLOL [Concomitant]
  4. CARDURA [Concomitant]
  5. POTASSIUM CHLORIDE [Concomitant]
  6. COUMADIN [Concomitant]

REACTIONS (1)
  - BLOOD PRESSURE INCREASED [None]
